FAERS Safety Report 7290821-2 (Version None)
Quarter: 2011Q1

REPORT INFORMATION
  Report Type: 
  Country: None (occurrence: None)
  Receive Date: 20110202
  Receipt Date: 20110120
  Transmission Date: 20110831
  Serious: Yes (Hospitalization)
  Sender: FDA-Public Use
  Company Number: 2010CP000081

PATIENT
  Age: 18 Year
  Sex: Male

DRUGS (17)
  1. VANCOMYCIN [Suspect]
     Indication: STAPHYLOCOCCAL SEPSIS
     Dosage: 2 GM;1 DAY;IV
     Route: 042
     Dates: start: 20091231, end: 20100115
  2. PERFALGAN (PARACETAMOL) [Suspect]
     Indication: PYREXIA
     Dosage: 4 GM;1 DAY;IV
     Route: 042
     Dates: start: 20091227, end: 20100104
  3. OCTALBINE (ALBUMIN HUMAN SERUM) (NO PREF. NAME) [Suspect]
     Indication: HYPOALBUMINAEMIA
     Dosage: 40 GM;1 DAY;IV
     Route: 042
     Dates: start: 20100103, end: 20100104
  4. NALBUPHINE [Suspect]
     Indication: ANALGESIC THERAPY
     Dosage: 80 MG;IV
     Route: 042
     Dates: start: 20091231, end: 20091231
  5. RIFAMPICIN [Suspect]
     Indication: STAPHYLOCOCCAL SEPSIS
     Dosage: 900 MG;2/1 DAY;PO
     Route: 048
     Dates: start: 20100111, end: 20100116
  6. BACTRIM [Suspect]
     Indication: PROPHYLAXIS
     Dosage: 400 MG;2/1 DAY;PO
     Route: 048
     Dates: start: 20091215, end: 20100119
  7. INEXIUM (ESOMEPRAZOLE) (NO PREF. NAME) [Suspect]
     Dosage: 20 MG;1 DAY;PO
     Route: 048
     Dates: start: 20091220, end: 20100119
  8. CLIMYCINE (COLISTIN SODIUM METHANSULFONATE) (NO PREF. NAME) [Suspect]
     Dosage: 150000 IU;3/1 DAY;PO
     Route: 048
     Dates: start: 20091228, end: 20100106
  9. ZOPHREN (ONDANSETRON HCL) (NO PREF. NAME) [Suspect]
     Indication: NAUSEA
     Dosage: 16 MG;1 DAY;IV
     Route: 042
     Dates: start: 20091230, end: 20100106
  10. NEUPOGEN [Suspect]
     Indication: NEUTROPENIA
     Dosage: 1 DOSAGE FORM;1/1 DAY;IV
     Route: 042
     Dates: start: 20091224, end: 20100104
  11. MORPHINE SULFATE INJ [Suspect]
     Indication: ANALGESIC THERAPY
     Dosage: 40 MG;1/1 DAY;IV
     Route: 042
     Dates: start: 20100101, end: 20100104
  12. CEFTAZIDIME [Suspect]
     Indication: STAPHYLOCOCCAL SEPSIS
     Dosage: 3 GM;1 DAY;IV
     Route: 042
     Dates: start: 20091226, end: 20100107
  13. PLITICAN (ALIZAPRIDE HYDROCHLORIDE) [Suspect]
     Indication: NAUSEA
     Dosage: 50 MG;3/1 DAY;IV
     Route: 042
     Dates: start: 20091226, end: 20100106
  14. VORICONAZOLE [Suspect]
  15. FUNIGIZONE (AMPHOTERICIN B) [Suspect]
     Dosage: 5 ML;3/1 DAY;PO
     Route: 048
     Dates: start: 20091218, end: 20100121
  16. GENTAMICIN SULFATE [Suspect]
     Indication: STAPHYLOCOCCAL SEPSIS
     Dosage: 300 MG;IV
     Route: 042
     Dates: start: 20091231, end: 20100107
  17. DUPHALAC (LACTULOSE) (NO PREF. NAME) [Suspect]
     Indication: CONSTIPATION
     Dosage: 1 DOSAGE FORM;3/1 DAY;PO
     Route: 048
     Dates: start: 20091222, end: 20100115

REACTIONS (7)
  - CONSTIPATION [None]
  - STAPHYLOCOCCAL SEPSIS [None]
  - NEUTROPENIA [None]
  - NAUSEA [None]
  - STEVENS-JOHNSON SYNDROME [None]
  - HYPOALBUMINAEMIA [None]
  - PAIN [None]
